FAERS Safety Report 4657453-3 (Version None)
Quarter: 2005Q2

REPORT INFORMATION
  Report Type: 
  Country: None (occurrence: None)
  Receive Date: 20050506
  Receipt Date: 20050427
  Transmission Date: 20051028
  Serious: Yes (Life-Threatening, Hospitalization, Disabling)
  Sender: FDA-Public Use
  Company Number: 2005-127840-NL

PATIENT
  Age: 23 Year
  Sex: Male
  Weight: 68 kg

DRUGS (2)
  1. REMERON [Suspect]
     Indication: DEPRESSION
     Dosage: 30  MG QD ORAL, AT BEDTIME
     Dates: start: 20031002, end: 20031016
  2. TEGRETOL [Concomitant]

REACTIONS (6)
  - CARDIAC ARREST [None]
  - CONDITION AGGRAVATED [None]
  - GRAND MAL CONVULSION [None]
  - IMPAIRED WORK ABILITY [None]
  - PETIT MAL EPILEPSY [None]
  - SIMPLE PARTIAL SEIZURES [None]
